FAERS Safety Report 15990122 (Version 8)
Quarter: 2019Q4

REPORT INFORMATION
  Report Type: Spontaneous
  Country: US (occurrence: US)
  Receive Date: 20190221
  Receipt Date: 20191108
  Transmission Date: 20200122
  Serious: Yes (Death, Hospitalization, Other)
  Sender: FDA-Public Use
  Company Number: US-CATALYST PHARMACEUTICALS, INC-2019CAT00028

PATIENT
  Age: 69 Year
  Sex: Male
  Weight: 94.1 kg

DRUGS (38)
  1. IPRATROPIUM BROMIDE; ALBUTEROL SULFATE [Concomitant]
     Dosage: 3 ML, UP TO 6X/DAY (EVERY 4 HOURS AS NEEDED)
  2. SUDAFED 12 HOUR [Concomitant]
     Active Substance: PSEUDOEPHEDRINE HYDROCHLORIDE
     Dosage: 120 MG, UP TO 2X/DAY (AS NEEDED)
     Route: 048
  3. IBUPROFEN. [Concomitant]
     Active Substance: IBUPROFEN
     Dosage: 400 MG, UP TO 4X/DAY (EVERY 6 HOURS AS NEEDED)
  4. BENZONATATE. [Concomitant]
     Active Substance: BENZONATATE
     Dosage: 100 MG, UP TO 3X/DAY (EVERY 8 HOURS AS NEEDED)
  5. FIRDAPSE [Suspect]
     Active Substance: AMIFAMPRIDINE
     Dosage: 20 MG, 4X/DAY
     Route: 048
     Dates: start: 2019, end: 2019
  6. GABAPENTIN. [Concomitant]
     Active Substance: GABAPENTIN
     Dosage: 600 MG, 1X/DAY EVERY EVENING
  7. IMMUNE GLOBULIN (HUMAN) 10% INFUSION [Concomitant]
     Dosage: UNK, 1X/DAY (EVERY 4 WEEKS)
  8. ACETAMINOPHEN. [Concomitant]
     Active Substance: ACETAMINOPHEN
     Dosage: 650 MG, UP TO 6X/DAY (EVERY 4 HOURS AS NEEDED)
  9. UNSPECIFIED TREATMENT [Suspect]
     Active Substance: UNSPECIFIED INGREDIENT
     Indication: SMALL CELL LUNG CANCER
  10. AZATHIOPRINE. [Concomitant]
     Active Substance: AZATHIOPRINE
     Dosage: 200 MG, 1X/DAY
     Route: 048
  11. CARVEDILOL. [Concomitant]
     Active Substance: CARVEDILOL
     Dosage: 6.25 MG, 2X/DAY WITH MEALS
     Route: 048
     Dates: end: 2019
  12. GABAPENTIN. [Concomitant]
     Active Substance: GABAPENTIN
     Dosage: 300 MG, 1X/DAY EVERY MORNING
     Route: 048
  13. METFORMIN [Concomitant]
     Active Substance: METFORMIN HYDROCHLORIDE
     Dosage: 1000 MG, 1X/DAY EVERY MORNING
  14. METFORMIN [Concomitant]
     Active Substance: METFORMIN HYDROCHLORIDE
     Dosage: 500 MG, 2X/DAY
  15. OPTISOURCE [Concomitant]
     Dosage: 1 TABLETS, 2X/DAY
     Route: 048
  16. PREDNISONE. [Concomitant]
     Active Substance: PREDNISONE
     Dosage: 20 MG, 1X/DAY
     Route: 048
  17. IMODIUM [Concomitant]
     Active Substance: LOPERAMIDE HYDROCHLORIDE
     Dosage: 2-4 MG, UP TO 2X/DAY AS NEEDED
     Route: 048
  18. ONDANSETRON [Concomitant]
     Active Substance: ONDANSETRON
     Dosage: 8 MG, UP TO 3X/DAY (EVERY 8 HOURS AS NEEDED)
     Route: 048
  19. PANTOPRAZOLE [Concomitant]
     Active Substance: PANTOPRAZOLE
     Dosage: 40 MG, 1X/DAY
     Route: 048
  20. LASIX [Concomitant]
     Active Substance: FUROSEMIDE
     Dosage: 40 MG, 1X/DAY
  21. FIRDAPSE [Suspect]
     Active Substance: AMIFAMPRIDINE
     Indication: MYASTHENIC SYNDROME
     Dosage: 20 MG, 4X/DAY
     Route: 048
     Dates: start: 201901, end: 2019
  22. UNSPECIFIED CHEMOTHERAPEUTIC AGENT [Suspect]
     Active Substance: UNSPECIFIED INGREDIENT
     Indication: SMALL CELL LUNG CANCER
     Dosage: UNK
     Dates: start: 201812
  23. PROCHLORPERAZINE. [Suspect]
     Active Substance: PROCHLORPERAZINE
     Dosage: 10 MG, UP TO 3X/DAY (EVERY 8 HOURS AS NEEDED)
     Route: 048
     Dates: end: 20190923
  24. GUAIFENESIN-CODEINE [Concomitant]
     Dosage: 5 ML, UP TO 3X/DAY (EVERY 8 HOURS AS NEEDED)
     Route: 048
  25. UNSPECIFIED EXPERIMENTAL DRUG [Concomitant]
  26. UNSPECIFIED CHEMOTHERAPEUTIC AGENT [Suspect]
     Active Substance: UNSPECIFIED INGREDIENT
     Dosage: UNK (FOR 3 DAYS EVERY 3 WEEKS FOR 33 DAYS, WITH RADIATION)
     Dates: start: 201901, end: 2019
  27. ASPIRIN. [Concomitant]
     Active Substance: ASPIRIN
     Dosage: 81 MG, 1X/DAY
     Route: 048
  28. FUROSEMIDE. [Concomitant]
     Active Substance: FUROSEMIDE
     Dosage: 40 MG, 1X/DAY
     Route: 048
  29. GABAPENTIN. [Concomitant]
     Active Substance: GABAPENTIN
     Dosage: 300 MG, 2X/DAY
  30. MUCINEX PO [Concomitant]
     Dosage: 1200 MG, 2X/DAY
     Route: 048
  31. LOSARTAN. [Concomitant]
     Active Substance: LOSARTAN
     Dosage: 12.5 MG, 1X/DAY NIGHTLY
     Route: 048
  32. ATORVASTATIN [Concomitant]
     Active Substance: ATORVASTATIN
     Dosage: 10 MG, 1X/DAY EVERY EVENING
     Route: 048
  33. CARVEDILOL. [Concomitant]
     Active Substance: CARVEDILOL
     Dosage: 25 MG, 1X/DAY
     Dates: start: 2019
  34. METFORMIN [Concomitant]
     Active Substance: METFORMIN HYDROCHLORIDE
     Dosage: 500 MG, 1X/DAY EVERY EVENING
  35. PYRIDOSTIGMINE [Concomitant]
     Active Substance: PYRIDOSTIGMINE
     Dosage: 90 MG, 3X/DAY
     Route: 048
  36. FIRDAPSE [Suspect]
     Active Substance: AMIFAMPRIDINE
     Dosage: 20 MG, 4X/DAY
     Route: 048
     Dates: start: 2019
  37. ISOSORBIDE MONONITRATE 24 HOUR [Concomitant]
     Dosage: 90 MG, 1X/DAY
     Route: 048
  38. ANORO ELLIPTA [Concomitant]
     Active Substance: UMECLIDINIUM BROMIDE\VILANTEROL TRIFENATATE
     Dosage: 1 DOSAGE UNITS, 1X/DAY

REACTIONS (23)
  - Immune system disorder [Not Recovered/Not Resolved]
  - Metastases to liver [Not Recovered/Not Resolved]
  - Gastrointestinal tube insertion [Unknown]
  - Fall [Recovered/Resolved]
  - Nephrolithiasis [Unknown]
  - Pneumonia [Recovered/Resolved]
  - Dyspnoea [Not Recovered/Not Resolved]
  - Asthenia [Not Recovered/Not Resolved]
  - Rib fracture [Recovering/Resolving]
  - Weight decreased [Not Recovered/Not Resolved]
  - Small cell lung cancer [Fatal]
  - Fibrin D dimer increased [Unknown]
  - Haemoglobin decreased [Not Recovered/Not Resolved]
  - Leukopenia [Recovered/Resolved]
  - Myasthenic syndrome [Not Recovered/Not Resolved]
  - Ventricular extrasystoles [Unknown]
  - Hyponatraemia [Not Recovered/Not Resolved]
  - Sputum increased [Unknown]
  - Muscular weakness [Recovering/Resolving]
  - Pneumothorax [Unknown]
  - Respiratory failure [Not Recovered/Not Resolved]
  - Brain natriuretic peptide increased [Unknown]
  - Neutropenia [Recovered/Resolved]

NARRATIVE: CASE EVENT DATE: 2019
